FAERS Safety Report 10548672 (Version 1)
Quarter: 2014Q4

REPORT INFORMATION
  Report Type: Spontaneous
  Country: BE (occurrence: BE)
  Receive Date: 20141028
  Receipt Date: 20141028
  Transmission Date: 20150529
  Serious: Yes (Other)
  Sender: FDA-Public Use
  Company Number: BE-AMGEN-BELSP2014081899

PATIENT
  Age: 84 Year
  Sex: Female

DRUGS (3)
  1. PROLIA [Suspect]
     Active Substance: DENOSUMAB
     Indication: PRODUCT USED FOR UNKNOWN INDICATION
     Route: 065
  2. CALCIUM [Concomitant]
     Active Substance: CALCIUM
  3. VITAMIN D                          /00107901/ [Concomitant]
     Active Substance: ERGOCALCIFEROL

REACTIONS (15)
  - Tooth disorder [Unknown]
  - Nail disorder [Unknown]
  - Bone pain [Unknown]
  - Musculoskeletal pain [Unknown]
  - Fall [Unknown]
  - Stomatitis [Unknown]
  - Tooth fracture [Unknown]
  - Pain in extremity [Unknown]
  - Cerebrovascular accident [Unknown]
  - Arthralgia [Unknown]
  - Hypothyroidism [Unknown]
  - Myalgia [Unknown]
  - Hypertension [Unknown]
  - Peripheral swelling [Unknown]
  - Toothache [Unknown]
